FAERS Safety Report 7744248-7 (Version None)
Quarter: 2011Q3

REPORT INFORMATION
  Report Type: 
  Country: None (occurrence: None)
  Receive Date: 20110912
  Receipt Date: 20110831
  Transmission Date: 20111222
  Serious: Yes (Other)
  Sender: FDA-Public Use
  Company Number: PHEH2011US02993

PATIENT
  Sex: Female

DRUGS (5)
  1. LISINOPRIL [Concomitant]
     Dosage: 10 MG, QD
  2. GILENYA [Suspect]
     Indication: MULTIPLE SCLEROSIS
     Dosage: 0.5 MG, QD
     Route: 048
     Dates: start: 20110713
  3. METFORMIN HCL [Suspect]
     Dosage: 500 MG, TID
  4. BACLOFEN [Concomitant]
     Dosage: UNK UKN, OT
  5. FAMPRIDINE [Concomitant]
     Dosage: 10 MG, BID

REACTIONS (3)
  - ANXIETY [None]
  - DIARRHOEA [None]
  - BLOOD PRESSURE INCREASED [None]
